FAERS Safety Report 5399618-1 (Version None)
Quarter: 2007Q3

REPORT INFORMATION
  Report Type: 
  Country: None (occurrence: None)
  Receive Date: 20070727
  Receipt Date: 20070719
  Transmission Date: 20080115
  Serious: Yes (Hospitalization)
  Sender: FDA-Public Use
  Company Number: US-GENENTECH-244189

PATIENT
  Sex: Female

DRUGS (17)
  1. RANIBIZUMAB [Suspect]
     Indication: MACULAR DEGENERATION
     Route: 031
     Dates: start: 20051213
  2. CORTISONE ACETATE TAB [Concomitant]
     Indication: ROTATOR CUFF SYNDROME
  3. IMDUR [Concomitant]
     Indication: ANGINA PECTORIS
     Dates: start: 20031012
  4. CARDIZEM [Concomitant]
     Indication: CARDIAC DISORDER
     Dates: start: 19970101, end: 20051228
  5. LIPITOR [Concomitant]
     Indication: BLOOD CHOLESTEROL
     Dates: start: 19970101, end: 20060915
  6. ATACAND [Concomitant]
     Indication: HYPERTENSION
     Dates: start: 19980101, end: 20060801
  7. ASPIRIN [Concomitant]
     Indication: PROPHYLAXIS
  8. ATENOLOL [Concomitant]
     Indication: HYPERTENSION
     Dates: start: 20061228
  9. PLAVIX [Concomitant]
     Indication: PROPHYLAXIS
     Dates: start: 20051029, end: 20061030
  10. DIOVAN [Concomitant]
     Indication: HYPERTENSION
     Dates: start: 20060801
  11. ZOCOR [Concomitant]
     Indication: BLOOD CHOLESTEROL
     Dates: start: 20060916
  12. NITROGLYCERIN [Concomitant]
     Indication: CHEST PAIN
     Dates: start: 20060821, end: 20060821
  13. ACETAMINOPHEN [Concomitant]
     Indication: PAIN
  14. XANAX [Concomitant]
     Indication: ANXIETY DISORDER
     Dates: start: 20070526
  15. ENOXAPARIN SODIUM [Concomitant]
     Indication: ANTICOAGULANT THERAPY
     Dates: start: 20070526
  16. NORVASC [Concomitant]
     Indication: HYPERTENSION
     Dates: start: 20070529
  17. PLAVIX [Concomitant]
     Dates: start: 20070529

REACTIONS (1)
  - MYOCARDIAL INFARCTION [None]
